FAERS Safety Report 10062685 (Version 1)
Quarter: 2014Q2

REPORT INFORMATION
  Report Type: Report from Study
  Country: US (occurrence: US)
  Receive Date: 20140407
  Receipt Date: 20140407
  Transmission Date: 20141212
  Serious: Yes (Hospitalization)
  Sender: FDA-Public Use
  Company Number: US-ASTRAZENECA-2014SE21927

PATIENT
  Age: 46 Year
  Sex: Male
  Weight: 127 kg

DRUGS (8)
  1. LISINOPRIL [Suspect]
     Indication: BLOOD PRESSURE ABNORMAL
     Route: 048
     Dates: start: 2003
  2. NEXIUM [Suspect]
     Indication: GASTROOESOPHAGEAL REFLUX DISEASE
     Route: 048
     Dates: start: 2008, end: 20140325
  3. PROPANOLOL [Concomitant]
     Indication: INFLAMMATION
     Route: 048
     Dates: start: 201306
  4. HYDROCHLOROTHIAZIDE [Concomitant]
     Indication: DIURETIC THERAPY
     Route: 048
     Dates: start: 2003
  5. POTASSIUM [Concomitant]
     Indication: LIVER DISORDER
     Route: 048
     Dates: start: 2013
  6. LACTULOSE SOLUTION [Concomitant]
     Indication: LIVER DISORDER
     Dosage: 2 TEASPOON THREE TIMES A DAY
     Route: 048
     Dates: start: 201112
  7. FOLIC ACID [Concomitant]
     Indication: LIVER DISORDER
     Dosage: 800MCG DAILY
     Route: 048
     Dates: start: 2013
  8. B-12 [Concomitant]
     Indication: LIVER DISORDER
     Dosage: 2500MCG DAILY
     Route: 048
     Dates: start: 2013

REACTIONS (6)
  - Liver disorder [Not Recovered/Not Resolved]
  - Ammonia increased [Recovered/Resolved]
  - Vasculitis [Unknown]
  - Gastrooesophageal reflux disease [Unknown]
  - Sleep disorder due to general medical condition, insomnia type [Unknown]
  - Drug dose omission [Unknown]
